FAERS Safety Report 12870748 (Version 1)
Quarter: 2016Q4

REPORT INFORMATION
  Report Type: Spontaneous
  Country: NL (occurrence: NL)
  Receive Date: 20161021
  Receipt Date: 20161021
  Transmission Date: 20170207
  Serious: Yes (Other)
  Sender: FDA-Public Use
  Company Number: NL-AUROBINDO-AUR-APL-2016-10071

PATIENT
  Age: 47 Year
  Sex: Female
  Weight: 71 kg

DRUGS (2)
  1. PANTOPRAZOL [Concomitant]
     Active Substance: PANTOPRAZOLE SODIUM
     Indication: PRODUCT USED FOR UNKNOWN INDICATION
     Dosage: 20 MG, ONCE A DAY
     Route: 048
     Dates: start: 2011
  2. CETIRIZINE DIHCL SANIAS 10 MG FILM COATED TABLET [Suspect]
     Active Substance: CETIRIZINE HYDROCHLORIDE
     Indication: HYPERSENSITIVITY
     Dosage: 10 MG, ONCE A DAY
     Route: 048
     Dates: start: 20160615, end: 20160706

REACTIONS (3)
  - Depressed mood [Recovered/Resolved]
  - Suicidal ideation [Recovered/Resolved]
  - Crying [Recovered/Resolved]

NARRATIVE: CASE EVENT DATE: 20160615
